FAERS Safety Report 6189726-X (Version None)
Quarter: 2009Q2

REPORT INFORMATION
  Report Type: 
  Country: None (occurrence: None)
  Receive Date: 20090514
  Receipt Date: 20090504
  Transmission Date: 20091009
  Serious: Yes (Hospitalization)
  Sender: FDA-Public Use
  Company Number: US-ROCHE-623909

PATIENT
  Age: 89 Year
  Sex: Female

DRUGS (2)
  1. BONIVA [Suspect]
     Indication: BONE DENSITY DECREASED
     Dosage: FORM: INJECTION
     Route: 042
     Dates: start: 20090316
  2. MORPHINE [Suspect]
     Indication: PAIN
     Route: 065

REACTIONS (6)
  - ABDOMINAL PAIN [None]
  - BACK PAIN [None]
  - CONFUSIONAL STATE [None]
  - PAIN IN EXTREMITY [None]
  - ULCER [None]
  - VOMITING [None]
